FAERS Safety Report 6489008-2 (Version None)
Quarter: 2009Q4

REPORT INFORMATION
  Report Type: 
  Country: None (occurrence: None)
  Receive Date: 20091210
  Receipt Date: 20090921
  Transmission Date: 20100525
  Serious: No
  Sender: FDA-Public Use
  Company Number: US-AMGEN-KDL365657

PATIENT
  Sex: Male

DRUGS (2)
  1. ENBREL [Suspect]
     Indication: PSORIATIC ARTHROPATHY
     Route: 058
     Dates: start: 20080301
  2. LASIX [Concomitant]
     Dates: start: 20080201

REACTIONS (3)
  - EAR INFECTION [None]
  - OTITIS EXTERNA [None]
  - PSORIATIC ARTHROPATHY [None]
